FAERS Safety Report 5146222-6 (Version None)
Quarter: 2006Q4

REPORT INFORMATION
  Report Type: 
  Country: None (occurrence: None)
  Receive Date: 20061108
  Receipt Date: 20061031
  Transmission Date: 20070319
  Serious: Yes (Hospitalization)
  Sender: FDA-Public Use
  Company Number: GB-SANOFI-SYNTHELABO-F01200602232

PATIENT
  Sex: Male

DRUGS (4)
  1. CAPECITABINE [Suspect]
     Dosage: 1000 MG/M2 BID DAYS 1-14
     Route: 048
     Dates: start: 20061012
  2. DEXAMETHASONE TAB [Concomitant]
     Route: 042
     Dates: start: 20061012, end: 20061012
  3. OXALIPLATIN [Suspect]
     Indication: COLORECTAL CANCER METASTATIC
     Route: 041
     Dates: start: 20061012, end: 20061012
  4. GRANISETRON [Concomitant]
     Route: 042
     Dates: start: 20061012, end: 20061012

REACTIONS (4)
  - CHOLINERGIC SYNDROME [None]
  - DIARRHOEA [None]
  - HYPERHIDROSIS [None]
  - VOMITING [None]
